FAERS Safety Report 7610385-0 (Version None)
Quarter: 2011Q3

REPORT INFORMATION
  Report Type: 
  Country: None (occurrence: None)
  Receive Date: 20110715
  Receipt Date: 20110713
  Transmission Date: 20111222
  Serious: No
  Sender: FDA-Public Use
  Company Number: US-PFIZER INC-2011060449

PATIENT
  Sex: Male
  Weight: 88.435 kg

DRUGS (2)
  1. ADVIL CONGESTION RELIEF [Suspect]
     Indication: SEASONAL ALLERGY
  2. ADVIL CONGESTION RELIEF [Suspect]
     Indication: SINUS DISORDER
     Dosage: 10 MG, 1X/DAY
     Route: 048
     Dates: start: 20110301, end: 20110301

REACTIONS (1)
  - DRUG INEFFECTIVE [None]
